APPROVED DRUG PRODUCT: HYDROXYZINE PAMOATE
Active Ingredient: HYDROXYZINE PAMOATE
Strength: EQ 50MG HYDROCHLORIDE
Dosage Form/Route: CAPSULE;ORAL
Application: A089032 | Product #001
Applicant: SUPERPHARM CORP
Approved: Jan 2, 1987 | RLD: No | RS: No | Type: DISCN